FAERS Safety Report 20548979 (Version 1)
Quarter: 2022Q1

REPORT INFORMATION
  Report Type: Other
  Country: US (occurrence: None)
  Receive Date: 20220303
  Receipt Date: 20220303
  Transmission Date: 20220423
  Serious: Yes (Death, Other)
  Sender: FDA-Public Use
  Company Number: US-ROCHE-3036898

PATIENT
  Age: 73 Year
  Sex: Male

DRUGS (4)
  1. LUCENTIS [Suspect]
     Active Substance: RANIBIZUMAB
     Indication: Type 2 diabetes mellitus
     Route: 065
     Dates: start: 20170405, end: 20201029
  2. LUCENTIS [Suspect]
     Active Substance: RANIBIZUMAB
     Indication: Diabetic retinopathy
  3. LUCENTIS [Suspect]
     Active Substance: RANIBIZUMAB
     Indication: Macular oedema
  4. LUCENTIS [Suspect]
     Active Substance: RANIBIZUMAB
     Indication: Macular degeneration

REACTIONS (2)
  - Death [Fatal]
  - Neoplasm malignant [Unknown]

NARRATIVE: CASE EVENT DATE: 20210414
